FAERS Safety Report 25182263 (Version 1)
Quarter: 2025Q2

REPORT INFORMATION
  Report Type: Spontaneous
  Country: US (occurrence: US)
  Receive Date: 20250410
  Receipt Date: 20250410
  Transmission Date: 20250717
  Serious: No
  Sender: KINIKSA PHARMACEUTICALS
  Company Number: US-Kiniksa Pharmaceuticals Ltd.-2024KPU000706

PATIENT
  Sex: Female

DRUGS (4)
  1. ARCALYST [Suspect]
     Active Substance: RILONACEPT
     Indication: Pericarditis
     Dosage: FIRST INJECTION
     Route: 058
     Dates: start: 2024
  2. ARCALYST [Suspect]
     Active Substance: RILONACEPT
     Indication: Pericarditis
  3. ARCALYST [Suspect]
     Active Substance: RILONACEPT
     Indication: Product used for unknown indication
  4. ARCALYST [Suspect]
     Active Substance: RILONACEPT
     Indication: Pericarditis

REACTIONS (4)
  - Injection site reaction [Recovering/Resolving]
  - Injection site swelling [Recovering/Resolving]
  - Injection site erythema [Recovering/Resolving]
  - Injection site pruritus [Recovering/Resolving]

NARRATIVE: CASE EVENT DATE: 20240401
